FAERS Safety Report 13197575 (Version 5)
Quarter: 2017Q3

REPORT INFORMATION
  Report Type: Spontaneous
  Country: US (occurrence: US)
  Receive Date: 20170208
  Receipt Date: 20170919
  Transmission Date: 20171127
  Serious: Yes (Other)
  Sender: FDA-Public Use
  Company Number: US-PFIZER INC-2017056063

PATIENT
  Age: 70 Year
  Sex: Female

DRUGS (2)
  1. DILANTIN [Suspect]
     Active Substance: PHENYTOIN
     Indication: SEIZURE
     Dosage: 500 MG, DAILY (100 MG 5 EXTENDED RELEASE CAPSULES AT BED TIME)
     Route: 048
     Dates: start: 20080528
  2. DILANTIN [Suspect]
     Active Substance: PHENYTOIN
     Dosage: 500 MG, DAILY (100 MG 5 TABLETS)
     Route: 048
     Dates: start: 20140624

REACTIONS (1)
  - Cerebellar atrophy [Unknown]
